FAERS Safety Report 22653618 (Version 1)
Quarter: 2023Q2

REPORT INFORMATION
  Report Type: Spontaneous
  Country: RU (occurrence: RU)
  Receive Date: 20230629
  Receipt Date: 20230629
  Transmission Date: 20230721
  Serious: Yes (Hospitalization, Other)
  Sender: FDA-Public Use
  Company Number: RU-002147023-NVSC2023RU146576

PATIENT
  Age: 69 Year
  Sex: Male
  Weight: 75 kg

DRUGS (2)
  1. VANCOMYCIN [Suspect]
     Active Substance: VANCOMYCIN
     Indication: Antibiotic therapy
     Dosage: UNK, BID
     Route: 065
  2. POLYMYXIN B [Concomitant]
     Active Substance: POLYMYXIN B
     Indication: Antibiotic therapy
     Dosage: 100 MG, BID
     Route: 065

REACTIONS (2)
  - Encephalopathy [Unknown]
  - Nephropathy [Recovering/Resolving]
